FAERS Safety Report 4771699-5 (Version None)
Quarter: 2005Q3

REPORT INFORMATION
  Report Type: 
  Country: None (occurrence: None)
  Receive Date: 20050916
  Receipt Date: 20050905
  Transmission Date: 20060218
  Serious: Yes (Death, Other)
  Sender: FDA-Public Use
  Company Number: 200512568JP

PATIENT
  Age: 78 Year
  Sex: Male
  Weight: 47.2 kg

DRUGS (27)
  1. LASIX [Suspect]
     Indication: OEDEMA
     Route: 042
     Dates: start: 20050730, end: 20050902
  2. LASIX [Suspect]
     Indication: OLIGURIA
     Route: 042
     Dates: start: 20050730, end: 20050902
  3. LYMPHOGLOBULINE [Concomitant]
     Indication: APLASTIC ANAEMIA
     Route: 041
     Dates: start: 20050728, end: 20050801
  4. NEORAL [Concomitant]
     Route: 048
     Dates: start: 20050714, end: 20050831
  5. FILGRASTIM [Concomitant]
     Route: 041
     Dates: start: 20050728, end: 20050827
  6. FUNGIZONE [Concomitant]
     Indication: ASPERGILLOSIS
     Route: 041
     Dates: start: 20050826, end: 20050902
  7. SOLU-CORTEF [Concomitant]
     Route: 041
     Dates: start: 20050826, end: 20050902
  8. TIENAM [Concomitant]
     Indication: INFECTION
     Route: 041
     Dates: start: 20050825, end: 20050902
  9. AMIKACIN SULFATE [Concomitant]
     Indication: INFECTION
     Route: 041
     Dates: start: 20050825, end: 20050902
  10. PREDONINE [Concomitant]
     Indication: PROPHYLAXIS
     Route: 048
     Dates: start: 20050828, end: 20050901
  11. GLOVENIN I [Concomitant]
  12. MAGNESIUM SULFATE [Concomitant]
     Indication: HYPOMAGNESAEMIA
     Dosage: DOSE: 40 MEQ
     Route: 041
     Dates: start: 20050730, end: 20050903
  13. VANCOMYCIN HYDROCHLORIDE [Concomitant]
     Indication: INFECTION
     Route: 041
     Dates: start: 20050808, end: 20050902
  14. METHYLPREDNISOLONE SODIUM SUCCINATE [Concomitant]
     Indication: PROPHYLAXIS
     Route: 041
     Dates: start: 20050728, end: 20050807
  15. HYDROCORTISONE SODIUM SUCCINATE [Concomitant]
     Indication: PROPHYLAXIS
     Route: 042
     Dates: start: 20050728, end: 20050801
  16. PREDNISOLONE [Concomitant]
     Indication: PROPHYLAXIS
     Route: 048
     Dates: start: 20050808, end: 20050826
  17. POLARAMINE [Concomitant]
     Indication: PROPHYLAXIS
     Route: 041
     Dates: start: 20050728, end: 20050801
  18. HUMULIN R [Concomitant]
     Indication: DIABETES MELLITUS
     Route: 058
     Dates: start: 20050729, end: 20050902
  19. ISONIAZID [Concomitant]
     Indication: TUBERCULOSIS PROPHYLAXIS
     Route: 048
     Dates: start: 20050705, end: 20050902
  20. COTRIM [Concomitant]
     Indication: INFECTION PROPHYLAXIS
     Dosage: DOSE: 4 TABLETS TWICE A WEEK
     Route: 048
     Dates: start: 20050706, end: 20050902
  21. DIFLUCAN [Concomitant]
     Indication: INFECTION PROPHYLAXIS
     Route: 048
     Dates: start: 20050723, end: 20050811
  22. GASTER [Concomitant]
     Indication: PROPHYLAXIS AGAINST GASTROINTESTINAL ULCER
     Route: 048
     Dates: start: 20050616, end: 20050902
  23. MAGNESIUM OXIDE [Concomitant]
     Indication: HYPOMAGNESAEMIA
     Route: 048
     Dates: start: 20050720, end: 20050831
  24. MEROPEN [Concomitant]
     Indication: INFECTION
     Route: 041
     Dates: start: 20050714, end: 20050809
  25. CRAVIT [Concomitant]
     Indication: INFECTION
     Route: 048
     Dates: start: 20050810, end: 20050819
  26. ANTIFUNGALS FOR SYSTEMIC USE [Concomitant]
     Indication: INFECTION
     Route: 041
     Dates: start: 20050811, end: 20050825
  27. CIPROXAN [Concomitant]
     Indication: INFECTION
     Route: 041
     Dates: start: 20050819, end: 20050825

REACTIONS (21)
  - BILIRUBIN CONJUGATED INCREASED [None]
  - BLOOD BILIRUBIN INCREASED [None]
  - BLOOD CREATININE INCREASED [None]
  - BLOOD PRESSURE DECREASED [None]
  - BLOOD UREA INCREASED [None]
  - C-REACTIVE PROTEIN INCREASED [None]
  - HYPERCHOLESTEROLAEMIA [None]
  - HYPERCOAGULATION [None]
  - HYPERGLYCAEMIA [None]
  - HYPOALBUMINAEMIA [None]
  - HYPOCHLORAEMIA [None]
  - HYPOKALAEMIA [None]
  - HYPONATRAEMIA [None]
  - HYPOPROTEINAEMIA [None]
  - HYPOXIA [None]
  - OEDEMA [None]
  - PNEUMONIA [None]
  - PROTHROMBIN TIME PROLONGED [None]
  - PYREXIA [None]
  - SEPSIS [None]
  - WEIGHT INCREASED [None]
